APPROVED DRUG PRODUCT: CLOBETASOL PROPIONATE
Active Ingredient: CLOBETASOL PROPIONATE
Strength: 0.05%
Dosage Form/Route: OINTMENT;TOPICAL
Application: A209701 | Product #001 | TE Code: AB
Applicant: XIROMED PHARMA ESPANA SL
Approved: Apr 17, 2018 | RLD: No | RS: No | Type: RX